FAERS Safety Report 24270315 (Version 3)
Quarter: 2024Q4

REPORT INFORMATION
  Report Type: Report from Study
  Country: US (occurrence: US)
  Receive Date: 20240830
  Receipt Date: 20241024
  Transmission Date: 20250115
  Serious: Yes (Other)
  Sender: ABBVIE
  Company Number: US-ABBVIE-5897288

PATIENT
  Age: 54 Year
  Sex: Female

DRUGS (2)
  1. HUMIRA [Suspect]
     Active Substance: ADALIMUMAB
     Indication: Rheumatoid arthritis
     Route: 058
     Dates: start: 2020, end: 202401
  2. HADLIMA [Suspect]
     Active Substance: ADALIMUMAB-BWWD
     Indication: Product used for unknown indication
     Route: 065
     Dates: start: 20240201, end: 20240901

REACTIONS (8)
  - Upper respiratory tract infection [Unknown]
  - Injection site pain [Unknown]
  - Dyspnoea [Unknown]
  - Ageusia [Unknown]
  - Anosmia [Unknown]
  - Adverse drug reaction [Not Recovered/Not Resolved]
  - Rheumatoid arthritis [Unknown]
  - Suspected COVID-19 [Unknown]

NARRATIVE: CASE EVENT DATE: 20231001
